FAERS Safety Report 5669382-7 (Version None)
Quarter: 2008Q1

REPORT INFORMATION
  Report Type: 
  Country: None (occurrence: None)
  Receive Date: 20080317
  Receipt Date: 20080307
  Transmission Date: 20080703
  Serious: Yes (Other)
  Sender: FDA-Public Use
  Company Number: PHBS2008BE03291

PATIENT
  Age: 50 Year
  Sex: Female

DRUGS (4)
  1. TOPIRAMATE [Suspect]
     Indication: EPILEPSY
     Dosage: 25 MG, BID
  2. TOPIRAMATE [Suspect]
     Dosage: UP TO 200 MG/DAY
  3. GABAPENTIN [Suspect]
     Indication: EPILEPSY
     Dosage: 2400 MG, UNK
  4. OXCARBAZEPINE [Suspect]
     Indication: EPILEPSY
     Dosage: 2100 MG, UNK

REACTIONS (22)
  - ABNORMAL BEHAVIOUR [None]
  - AFFECT LABILITY [None]
  - AFFECTIVE DISORDER [None]
  - ALTERED VISUAL DEPTH PERCEPTION [None]
  - APHASIA [None]
  - BALANCE DISORDER [None]
  - BRAIN SCAN ABNORMAL [None]
  - CEREBELLAR SYNDROME [None]
  - CRYING [None]
  - DISTURBANCE IN ATTENTION [None]
  - DYSARTHRIA [None]
  - DYSGRAPHIA [None]
  - DYSSTASIA [None]
  - FEELING OF DESPAIR [None]
  - GAIT DISTURBANCE [None]
  - HYPOPERFUSION [None]
  - MENTAL IMPAIRMENT [None]
  - MOTOR DYSFUNCTION [None]
  - MYOCLONUS [None]
  - SPEECH DISORDER [None]
  - TREMOR [None]
  - VISUAL DISTURBANCE [None]
